FAERS Safety Report 7997446-1 (Version None)
Quarter: 2011Q4

REPORT INFORMATION
  Report Type: 
  Country: None (occurrence: None)
  Receive Date: 20111221
  Receipt Date: 20111220
  Transmission Date: 20120403
  Serious: Yes (Hospitalization)
  Sender: FDA-Public Use
  Company Number: SE-ROCHE-1016207

PATIENT
  Age: 79 Year
  Sex: Female

DRUGS (6)
  1. METHOTREXATE [Concomitant]
     Dosage: RETSRATED THERAY ON 15 FEB 2011
     Dates: start: 20110215
  2. ACTEMRA [Suspect]
     Dosage: FORM STRENGTH: 20 MG/ML, LAST DOSE
     Route: 042
     Dates: start: 20110823, end: 20110920
  3. ACTEMRA [Suspect]
     Dosage: FORM STRENGTH: 20 MG/ML
     Route: 042
     Dates: start: 20110215, end: 20110609
  4. PREDNISOLONE [Concomitant]
  5. ACTEMRA [Suspect]
     Indication: RHEUMATOID ARTHRITIS
     Dosage: FORM STRENGTH: 20 MG/ML
     Route: 042
     Dates: start: 20090312, end: 20090820
  6. IBUPROFEN [Concomitant]

REACTIONS (1)
  - VASCULAR OCCLUSION [None]
